FAERS Safety Report 9618461 (Version 2)
Quarter: 2013Q4

REPORT INFORMATION
  Report Type: Spontaneous
  Country: US (occurrence: US)
  Receive Date: 20131014
  Receipt Date: 20131121
  Transmission Date: 20140711
  Serious: Yes (Other)
  Sender: FDA-Public Use
  Company Number: US-PFIZER INC-2013291165

PATIENT
  Age: 69 Year
  Sex: Female

DRUGS (9)
  1. SUTENT [Suspect]
     Indication: RENAL CELL CARCINOMA
     Dosage: 25 MG, UNK
     Dates: start: 20120313
  2. SUTENT [Suspect]
     Dosage: 37.5 MG, DAILY (2/3 WEEKS)
     Route: 048
     Dates: end: 20130925
  3. ATENOLOL [Concomitant]
     Indication: HYPERTENSION
     Dosage: 50 MG, DAILY
  4. CIPRO [Concomitant]
     Dosage: UNK
  5. DICYCLOMINE HYDROCHLORIDE [Concomitant]
     Indication: IRRITABLE BOWEL SYNDROME
     Dosage: 20 MG, DAILY
  6. SODIUM BICARBONATE [Concomitant]
     Dosage: 10 G, 4X/DAY
  7. VITAMIN D3 [Concomitant]
     Dosage: 5000 UNITS DAILY
  8. ALLOPURINOL [Concomitant]
     Indication: GOUT
     Dosage: 100 MG, DAILY
  9. AMLODIPINE [Concomitant]
     Indication: HYPERTENSION
     Dosage: 10 MG, DAILY

REACTIONS (1)
  - Renal failure acute [Unknown]
